FAERS Safety Report 8197765-2 (Version None)
Quarter: 2012Q1

REPORT INFORMATION
  Report Type: 
  Country: None (occurrence: None)
  Receive Date: 20120309
  Receipt Date: 20120227
  Transmission Date: 20120608
  Serious: Yes (Life-Threatening, Hospitalization)
  Sender: FDA-Public Use
  Company Number: BR-BRISTOL-MYERS SQUIBB COMPANY-16422503

PATIENT
  Age: 47 Year
  Sex: Female
  Weight: 69 kg

DRUGS (13)
  1. CEFEPIME [Interacting]
     Indication: ANAEMIA
     Dosage: EVERY 8:0,EMPERIC THERAPY
     Route: 042
  2. DIPYRONE TAB [Concomitant]
     Indication: FEBRILE NEUTROPENIA
     Route: 048
  3. DIPYRONE TAB [Concomitant]
     Indication: ANAEMIA
     Route: 048
  4. CYTARABINE [Suspect]
     Dosage: FOR 7 DAYS
     Route: 048
  5. METHOTREXATE [Concomitant]
     Dosage: FROM DAY 37
  6. TRETINOIN [Interacting]
     Dosage: CONTINUED UNTIL DAY 16,RESTARTED FROM DAY 37 20MG/M2
     Route: 048
  7. CEFEPIME [Interacting]
     Indication: THROMBOCYTOPENIA
     Dosage: EVERY 8:0,EMPERIC THERAPY
     Route: 042
  8. DEXAMETHASONE [Concomitant]
  9. FLUCONAZOLE [Interacting]
     Route: 048
  10. MITOXANTRONE [Suspect]
     Dosage: FOR 3 DAYS
     Route: 048
  11. AMPHOTERICIN B [Suspect]
     Dosage: 6:0 ON DAY13,STOPPED ON DAY 21
     Route: 042
  12. CEFEPIME [Interacting]
     Indication: FEBRILE NEUTROPENIA
     Dosage: EVERY 8:0,EMPERIC THERAPY
     Route: 042
  13. DIPYRONE TAB [Concomitant]
     Indication: THROMBOCYTOPENIA
     Route: 048

REACTIONS (5)
  - DIARRHOEA [None]
  - HEPATOMEGALY [None]
  - RENAL FAILURE ACUTE [None]
  - DRUG INTERACTION [None]
  - PNEUMONIA KLEBSIELLA [None]
